FAERS Safety Report 9158870 (Version 1)
Quarter: 2013Q1

REPORT INFORMATION
  Report Type: Spontaneous
  Country: GB (occurrence: None)
  Receive Date: 20130211
  Receipt Date: 20130211
  Transmission Date: 20140127
  Serious: Yes (Hospitalization)
  Sender: FDA-Public Use
  Company Number: AG-2013-0311

PATIENT
  Age: 76 Year
  Sex: Male
  Weight: 70 kg

DRUGS (10)
  1. CHLORAMBUCIL (CHLORAMBUCIL) (UNKNOWN) [Suspect]
     Indication: CHRONIC LYMPHOCYTIC LEUKAEMIA
     Route: 048
     Dates: start: 20120323
  2. OFATUMUMAB [Suspect]
     Indication: CHRONIC LYMPHOCYTIC LEUKAEMIA
     Dosage: 1000 MG CYCLICAL
     Route: 042
     Dates: start: 20120322
  3. PREDNISOLONE (PREDNISOLONE) (UNKNOWN) [Concomitant]
  4. PARACETAMOL (PARACETAMOL) (UNKNOWN) [Concomitant]
  5. SALMETEROL (SALMETEROL) (INHALATION POWDER) [Concomitant]
  6. CHLORPHENAMINE (CHLORPHENAMINE) (UNKNOWN) [Concomitant]
  7. PREDNISOLONE (PREDNISOLONE) (UNKNOWN) [Concomitant]
  8. ALLOPURINOL (ALLOPURINOL) (UNKNOWN) [Concomitant]
  9. METOCLOPRAMIDE (METOCLOPRAMIDE) (UNKNOWN) [Concomitant]
  10. ACICLOVIR (ACICLOVIR) (UNKNOWN) [Concomitant]

REACTIONS (1)
  - Respiratory tract infection [None]
